FAERS Safety Report 8507116-9 (Version None)
Quarter: 2012Q3

REPORT INFORMATION
  Report Type: 
  Country: None (occurrence: None)
  Receive Date: 20120712
  Receipt Date: 20120703
  Transmission Date: 20120928
  Serious: Yes (Other)
  Sender: FDA-Public Use
  Company Number: JP-JNJFOC-20120704142

PATIENT
  Sex: Female
  Weight: 55 kg

DRUGS (13)
  1. SIMPONI [Suspect]
     Route: 058
     Dates: start: 20111115
  2. SIMPONI [Suspect]
     Route: 058
     Dates: start: 20120208
  3. SIMPONI [Suspect]
     Indication: RHEUMATOID ARTHRITIS
     Route: 058
     Dates: start: 20120307, end: 20120307
  4. SIMPONI [Suspect]
     Route: 058
     Dates: start: 20120111
  5. SIMPONI [Suspect]
     Route: 058
     Dates: start: 20111212
  6. ETANERCEPT [Concomitant]
     Dates: end: 20111102
  7. ETODOLAC [Concomitant]
     Indication: RHEUMATOID ARTHRITIS
     Route: 048
  8. AMLODIPINE [Concomitant]
     Route: 048
  9. TERIPARATIDE [Concomitant]
     Route: 058
     Dates: start: 20111208, end: 20120516
  10. MAGNESIUM OXIDE [Concomitant]
     Route: 048
     Dates: start: 20120111
  11. METHOTREXATE [Suspect]
     Indication: RHEUMATOID ARTHRITIS
     Route: 048
  12. ISONIAZID [Concomitant]
     Indication: PROPHYLAXIS
     Route: 048
     Dates: end: 20120416
  13. LAFUTIDINE [Concomitant]
     Route: 048

REACTIONS (2)
  - HEPATITIS C [None]
  - CONDITION AGGRAVATED [None]
